FAERS Safety Report 4834306-9 (Version None)
Quarter: 2005Q4

REPORT INFORMATION
  Report Type: 
  Country: None (occurrence: None)
  Receive Date: 20051122
  Receipt Date: 20051111
  Transmission Date: 20060501
  Serious: Yes (Hospitalization)
  Sender: FDA-Public Use
  Company Number: NO-ROCHE-424534

PATIENT
  Age: 19 Year
  Sex: Male

DRUGS (7)
  1. ROACCUTAN [Suspect]
     Indication: ACNE
     Route: 048
     Dates: start: 20050515
  2. CIPRALEX [Concomitant]
     Route: 048
     Dates: start: 20050707, end: 20050826
  3. REMERON [Concomitant]
     Route: 048
  4. TRUXAL [Concomitant]
     Route: 048
     Dates: start: 20050726, end: 20050826
  5. IMOVANE [Concomitant]
     Dosage: DOSAGE REGIMEN REPORTER AS: 5 OR 7.5MG.
     Route: 048
     Dates: start: 20050712, end: 20050727
  6. STILNOCT [Concomitant]
     Dates: start: 20050723, end: 20050826
  7. VALLERGAN [Concomitant]
     Dates: start: 20050715

REACTIONS (1)
  - SUICIDE ATTEMPT [None]
